FAERS Safety Report 14948197 (Version 1)
Quarter: 2018Q2

REPORT INFORMATION
  Report Type: Spontaneous
  Country: IL (occurrence: IL)
  Receive Date: 20180529
  Receipt Date: 20180529
  Transmission Date: 20180711
  Serious: Yes (Disabling, Other)
  Sender: FDA-Public Use
  Company Number: IL-ASTRAZENECA-2018SE68069

PATIENT
  Age: 79 Year
  Sex: Male

DRUGS (1)
  1. SEROQUEL [Suspect]
     Active Substance: QUETIAPINE FUMARATE
     Dosage: 12.5 MG AT NIGHT AND IN THE MORNING
     Route: 048
     Dates: start: 20171103

REACTIONS (2)
  - Cerebral haemorrhage [Unknown]
  - Brain compression [Unknown]
